FAERS Safety Report 13803441 (Version 1)
Quarter: 2017Q3

REPORT INFORMATION
  Report Type: Spontaneous
  Country: GB (occurrence: GB)
  Receive Date: 20170728
  Receipt Date: 20170728
  Transmission Date: 20171127
  Serious: Yes (Other)
  Sender: FDA-Public Use
  Company Number: GB-ACCORD-056203

PATIENT
  Age: 51 Year
  Sex: Female
  Weight: 104 kg

DRUGS (4)
  1. IRON [Concomitant]
     Active Substance: IRON
  2. VALPROIC ACID. [Concomitant]
     Active Substance: VALPROIC ACID
  3. AMLODIPINE [Suspect]
     Active Substance: AMLODIPINE BESYLATE
     Indication: HYPERTENSION
     Route: 048
     Dates: start: 20170406, end: 20170413
  4. RAMIPRIL. [Concomitant]
     Active Substance: RAMIPRIL

REACTIONS (2)
  - Petit mal epilepsy [Recovered/Resolved]
  - Malaise [Unknown]

NARRATIVE: CASE EVENT DATE: 20170406
